FAERS Safety Report 6806312-6 (Version None)
Quarter: 2010Q2

REPORT INFORMATION
  Report Type: 
  Country: None (occurrence: None)
  Receive Date: 20100629
  Receipt Date: 20080211
  Transmission Date: 20101027
  Serious: No
  Sender: FDA-Public Use
  Company Number: US-PFIZER INC-2007104783

PATIENT
  Sex: Female
  Weight: 62.14 kg

DRUGS (3)
  1. CLEOCIN VAGINAL OVULES [Suspect]
     Indication: VAGINITIS BACTERIAL
     Route: 067
     Dates: start: 20071127, end: 20071201
  2. DIFLUCAN [Suspect]
     Indication: VULVOVAGINAL MYCOTIC INFECTION
     Dates: start: 20071127
  3. CIPROFLOXACIN [Concomitant]
     Indication: ESCHERICHIA VAGINITIS
     Dates: start: 20071205, end: 20071212

REACTIONS (2)
  - MUSCLE SPASMS [None]
  - VAGINAL HAEMORRHAGE [None]
